FAERS Safety Report 7337232-9 (Version None)
Quarter: 2011Q1

REPORT INFORMATION
  Report Type: 
  Country: None (occurrence: None)
  Receive Date: 20110308
  Receipt Date: 20110223
  Transmission Date: 20110831
  Serious: Yes (Other)
  Sender: FDA-Public Use
  Company Number: PHHY2010BR47054

PATIENT
  Age: 35 Year
  Sex: Female

DRUGS (2)
  1. CARBOLITIUM [Concomitant]
     Indication: SCHIZOPHRENIA
     Dosage: UNK
  2. LEPONEX [Suspect]
     Indication: SCHIZOPHRENIA
     Dosage: 100 MG, UNK
     Dates: start: 20091001

REACTIONS (2)
  - CHRONIC SINUSITIS [None]
  - NASAL OPERATION [None]
